FAERS Safety Report 9947591 (Version 1)
Quarter: 2014Q1

REPORT INFORMATION
  Report Type: Report from Study
  Country: US (occurrence: US)
  Receive Date: 20140303
  Receipt Date: 20140303
  Transmission Date: 20141002
  Serious: No
  Sender: FDA-Public Use
  Company Number: US-ABBVIE-13P-163-1062634-00

PATIENT
  Age: 67 Year
  Sex: Female

DRUGS (13)
  1. HUMIRA [Suspect]
     Indication: PSORIASIS
     Dates: start: 20130228
  2. BYSTOLIC [Concomitant]
     Indication: HYPERTENSION
  3. BENICAR [Concomitant]
     Indication: HYPERTENSION
  4. METFORMIN [Concomitant]
     Indication: GLUCOSE TOLERANCE IMPAIRED
  5. HYDROXYUREA [Concomitant]
     Indication: BLOOD DISORDER
  6. GLUCOSAMINE CHONDROITIN TRIPLE STRENGTH [Concomitant]
     Indication: ARTHRITIS
  7. OYSTER SHELL CALCIUM +D [Concomitant]
     Indication: OSTEOPOROSIS
  8. SIMVASTATIN [Concomitant]
     Indication: BLOOD CHOLESTEROL INCREASED
  9. OMEGA 3 FISH OIL [Concomitant]
     Indication: ARTHROPATHY
  10. B6 [Concomitant]
     Indication: NUTRITIONAL SUPPLEMENTATION
  11. B6 [Concomitant]
     Indication: METABOLIC DISORDER
  12. STRESS FORMULA WITH ZINC [Concomitant]
     Indication: VITAMIN SUPPLEMENTATION
  13. CORTISONE [Concomitant]
     Indication: ARTHRALGIA
     Dosage: ONE INTO RIGHT AND LEFT KNEE
     Dates: start: 20130306

REACTIONS (3)
  - Abnormal faeces [Not Recovered/Not Resolved]
  - Faeces discoloured [Not Recovered/Not Resolved]
  - Dyspepsia [Not Recovered/Not Resolved]
